FAERS Safety Report 9204129 (Version 1)
Quarter: 2013Q2

REPORT INFORMATION
  Report Type: Spontaneous
  Country: US (occurrence: US)
  Receive Date: 20130402
  Receipt Date: 20130402
  Transmission Date: 20140414
  Serious: Yes (Other)
  Sender: FDA-Public Use
  Company Number: US-BAYER-2013-036888

PATIENT
  Age: 65 Year
  Sex: Female

DRUGS (1)
  1. BETASERON [Suspect]
     Indication: MULTIPLE SCLEROSIS
     Dosage: 0.3 MG, BIW
     Route: 058
     Dates: start: 20120731

REACTIONS (5)
  - Dysstasia [None]
  - Mobility decreased [None]
  - Vomiting [None]
  - Bruxism [None]
  - Tongue biting [None]
